FAERS Safety Report 5029623-6 (Version None)
Quarter: 2006Q2

REPORT INFORMATION
  Report Type: 
  Country: None (occurrence: None)
  Receive Date: 20060503
  Receipt Date: 20060328
  Transmission Date: 20061013
  Serious: No
  Sender: FDA-Public Use
  Company Number: FACT0600189

PATIENT
  Age: 26 Year
  Sex: Male
  Weight: 59 kg

DRUGS (2)
  1. FACTIVE [Suspect]
     Indication: RESPIRATORY TRACT INFECTION BACTERIAL
     Dosage: 320 MG,QD,ORAL
     Route: 048
  2. ROBITUSSION DM /USA/(DEXTROMETHORPHAN HYDROBROMIDE, GUAIFENESIN) [Suspect]
     Dates: start: 20060320, end: 20060322

REACTIONS (1)
  - HEADACHE [None]
